FAERS Safety Report 21883874 (Version 1)
Quarter: 2023Q1

REPORT INFORMATION
  Report Type: Spontaneous
  Country: US (occurrence: None)
  Receive Date: 20230118
  Receipt Date: 20230118
  Transmission Date: 20230418
  Serious: No
  Sender: FDA-Public Use
  Company Number: None

PATIENT
  Age: 67 Year
  Sex: Female

DRUGS (1)
  1. ADBRY [Suspect]
     Active Substance: TRALOKINUMAB-LDRM
     Indication: Dermatitis atopic
     Dosage: FREQUENCY : AS DIRECTED;?INJECT 600MG (4 SYRINGES) SUBCUTANEOUSLY ON DAY 1,?THEN 300MG (2 SYRINGES)
     Route: 058
     Dates: start: 202209

REACTIONS (1)
  - Bronchitis [None]
